FAERS Safety Report 9201476 (Version 2)
Quarter: 2013Q2

REPORT INFORMATION
  Report Type: Spontaneous
  Country: IT (occurrence: BR)
  Receive Date: 20130401
  Receipt Date: 20130419
  Transmission Date: 20140414
  Serious: Yes (Hospitalization)
  Sender: FDA-Public Use
  Company Number: BR-FRI-1000043891

PATIENT
  Age: 77 Year
  Sex: Female
  Weight: 56 kg

DRUGS (4)
  1. NEBIVOLOL [Suspect]
     Indication: HYPERTENSION
     Dosage: 5 MG
     Route: 048
     Dates: start: 201302, end: 201302
  2. NEBIVOLOL [Suspect]
     Indication: HYPERTENSION
     Dosage: 10 MG
     Route: 048
     Dates: start: 201303, end: 20130328
  3. SIMVASTATINE? [Concomitant]
     Indication: HYPERCHOLESTEROLAEMIA
  4. FERROUS SULFATE [Concomitant]
     Indication: ANAEMIA

REACTIONS (5)
  - Pulmonary oedema [Unknown]
  - Heart rate decreased [Unknown]
  - Oedema peripheral [Not Recovered/Not Resolved]
  - Rash macular [Not Recovered/Not Resolved]
  - Blood pressure decreased [Not Recovered/Not Resolved]
